FAERS Safety Report 7655736-6 (Version None)
Quarter: 2011Q3

REPORT INFORMATION
  Report Type: 
  Country: None (occurrence: None)
  Receive Date: 20110804
  Receipt Date: 20110727
  Transmission Date: 20111222
  Serious: Yes (Hospitalization, Other)
  Sender: FDA-Public Use
  Company Number: US-GILEAD-2011-0042046

PATIENT
  Sex: Female

DRUGS (1)
  1. LETAIRIS [Suspect]
     Indication: PULMONARY HYPERTENSION
     Route: 048
     Dates: start: 20090602

REACTIONS (5)
  - TRANSFUSION [None]
  - RENAL DISORDER [None]
  - DIALYSIS [None]
  - NERVOUS SYSTEM DISORDER [None]
  - BLOOD DISORDER [None]
